FAERS Safety Report 9848879 (Version 3)
Quarter: 2014Q1

REPORT INFORMATION
  Report Type: Report from Study
  Country: ES (occurrence: ES)
  Receive Date: 20140128
  Receipt Date: 20140226
  Transmission Date: 20141002
  Serious: Yes (Other)
  Sender: FDA-Public Use
  Company Number: ES-MILLENNIUM PHARMACEUTICALS, INC.-2014JNJ000127

PATIENT
  Sex: 0

DRUGS (5)
  1. VELCADE [Suspect]
     Indication: PLASMA CELL MYELOMA
     Dosage: 1.9 MG, UNK
     Route: 042
     Dates: start: 20120709, end: 20130204
  2. VELCADE [Suspect]
     Dosage: 1.9 MG, UNK
     Route: 042
     Dates: start: 20130304
  3. BENDAMUSTINE [Suspect]
     Indication: PLASMA CELL MYELOMA
     Dosage: 171 MG, UNK
     Route: 042
     Dates: start: 20120709, end: 20130121
  4. BENDAMUSTINE [Suspect]
     Dosage: 70 MG/M2, UNK
     Route: 042
     Dates: start: 20130304
  5. PREDNISONE [Suspect]
     Indication: PLASMA CELL MYELOMA
     Dosage: 114 MG, UNK
     Route: 048
     Dates: start: 20120709, end: 20130117

REACTIONS (1)
  - Neutropenia [Recovered/Resolved]
